FAERS Safety Report 11770351 (Version 5)
Quarter: 2018Q1

REPORT INFORMATION
  Report Type: Report from Study
  Country: US (occurrence: US)
  Receive Date: 20151123
  Receipt Date: 20180103
  Transmission Date: 20180508
  Serious: Yes (Hospitalization)
  Sender: FDA-Public Use
  Company Number: US-ACTELION-A-NJ2015-111174

PATIENT
  Age: 70 Year
  Sex: Male
  Weight: 102.49 kg

DRUGS (5)
  1. LASIX [Suspect]
     Active Substance: FUROSEMIDE
     Indication: PRODUCT USED FOR UNKNOWN INDICATION
     Dosage: UNK UNK, UNK
     Route: 065
  2. RIOCIGUAT [Concomitant]
     Active Substance: RIOCIGUAT
  3. TYVASO [Concomitant]
     Active Substance: TREPROSTINIL
  4. OPSUMIT [Suspect]
     Active Substance: MACITENTAN
     Indication: PULMONARY HYPERTENSION
     Dosage: 10 MG, QD
     Route: 048
     Dates: start: 20150119
  5. WARFARIN [Concomitant]
     Active Substance: WARFARIN

REACTIONS (14)
  - Dyspnoea [Unknown]
  - Sinusitis [Unknown]
  - Productive cough [Unknown]
  - Wheezing [Unknown]
  - Weight increased [Unknown]
  - Gout [Unknown]
  - Sinus congestion [Unknown]
  - Cough [Unknown]
  - Drug ineffective [Unknown]
  - Oedema peripheral [Unknown]
  - Cellulitis [Unknown]
  - Fluid retention [Unknown]
  - Nasal congestion [Unknown]
  - Nasopharyngitis [Unknown]
